FAERS Safety Report 10039872 (Version 2)
Quarter: 2014Q2

REPORT INFORMATION
  Report Type: Report from Study
  Country: BR (occurrence: BR)
  Receive Date: 20140326
  Receipt Date: 20140505
  Transmission Date: 20141212
  Serious: Yes (Other)
  Sender: FDA-Public Use
  Company Number: BR-JNJFOC-20140313412

PATIENT
  Age: 33 Year
  Sex: Female

DRUGS (2)
  1. XARELTO [Suspect]
     Indication: ANTICOAGULANT THERAPY
     Route: 048
     Dates: start: 20140314
  2. XARELTO [Suspect]
     Indication: ANTICOAGULANT THERAPY
     Route: 048

REACTIONS (4)
  - Polymenorrhoea [Recovered/Resolved]
  - Dry throat [Recovered/Resolved]
  - Headache [Recovered/Resolved]
  - Gingival swelling [Recovered/Resolved]
